APPROVED DRUG PRODUCT: EXTINA
Active Ingredient: KETOCONAZOLE
Strength: 2% **Federal Register determination that product was not discontinued or withdrawn for safety or effectiveness reasons**
Dosage Form/Route: AEROSOL, FOAM;TOPICAL
Application: N021738 | Product #001
Applicant: RISING PHARMA HOLDINGS INC
Approved: Jun 12, 2007 | RLD: Yes | RS: No | Type: DISCN